FAERS Safety Report 4995558-8 (Version None)
Quarter: 2006Q2

REPORT INFORMATION
  Report Type: 
  Country: None (occurrence: None)
  Receive Date: 20060504
  Receipt Date: 20060425
  Transmission Date: 20061013
  Serious: Yes (Hospitalization)
  Sender: FDA-Public Use
  Company Number: 163-21880-06040005

PATIENT
  Age: 67 Year
  Sex: Male

DRUGS (3)
  1. REVLIMID [Suspect]
     Indication: MULTIPLE MYELOMA
     Dosage: 25 MG, DAILY, ORAL
     Route: 048
     Dates: start: 20060207, end: 20060301
  2. REVLIMID [Suspect]
     Indication: MYELODYSPLASTIC SYNDROME
     Dosage: 25 MG, DAILY, ORAL
     Route: 048
     Dates: start: 20060207, end: 20060301
  3. REVLIMID [Suspect]

REACTIONS (3)
  - CLOSTRIDIUM DIFFICILE COLITIS [None]
  - COLITIS PSEUDOMEMBRANOUS [None]
  - ILEUS PARALYTIC [None]
